FAERS Safety Report 7383437-0 (Version None)
Quarter: 2011Q1

REPORT INFORMATION
  Report Type: 
  Country: None (occurrence: None)
  Receive Date: 20110324
  Receipt Date: 20110324
  Transmission Date: 20110831
  Serious: Yes (Other)
  Sender: FDA-Public Use
  Company Number: None

PATIENT
  Age: 43 Year
  Sex: Female
  Weight: 78.4723 kg

DRUGS (1)
  1. DEXILANT [Suspect]
     Indication: DYSPEPSIA
     Dates: start: 20110319, end: 20110320

REACTIONS (3)
  - EXTRAPYRAMIDAL DISORDER [None]
  - AKINAESTHESIA [None]
  - DYSTONIA [None]
